FAERS Safety Report 4567397-3 (Version None)
Quarter: 2005Q1

REPORT INFORMATION
  Report Type: 
  Country: None (occurrence: None)
  Receive Date: 20050127
  Receipt Date: 20050126
  Transmission Date: 20050727
  Serious: Yes (Other)
  Sender: FDA-Public Use
  Company Number: HQWYE636214JAN05

PATIENT
  Age: 100 Year
  Sex: Male

DRUGS (5)
  1. INIPOMP (PANTOPRAZOLE, TABLET, DELAYED RELEASE) [Suspect]
     Dosage: 40 MG 1X PER 1 DAY
     Route: 048
     Dates: start: 20000901, end: 20040101
  2. PLAVIX [Suspect]
     Dosage: 75 MG
  3. FUROSEMIDE (FUROSEMIDE) [Concomitant]
  4. QUESTRAN (LOLESTYRAMINE) [Concomitant]
  5. TANAKAN (GINKGO TREE LEAVES EXTRACT) [Concomitant]

REACTIONS (2)
  - DERMATITIS BULLOUS [None]
  - RASH PUSTULAR [None]
